FAERS Safety Report 4433047-X (Version None)
Quarter: 2004Q3

REPORT INFORMATION
  Report Type: 
  Country: None (occurrence: None)
  Receive Date: 20040721
  Receipt Date: 20030715
  Transmission Date: 20050211
  Serious: Yes (Other)
  Sender: FDA-Public Use
  Company Number: WAES0307USA01957

PATIENT
  Age: 66 Year
  Sex: Male
  Weight: 95.2554 kg

DRUGS (3)
  1. VIOXX [Suspect]
     Indication: PAIN IN EXTREMITY
     Dosage: 50 MG/1X/PO
     Route: 048
     Dates: start: 20030706, end: 20030706
  2. VIOXX [Suspect]
     Indication: PAIN IN EXTREMITY
     Dosage: 25 MG/ PRN/ PO
     Route: 048
  3. ALTACE [Concomitant]

REACTIONS (1)
  - BLOOD PRESSURE INCREASED [None]
